FAERS Safety Report 13746236 (Version 1)
Quarter: 2017Q3

REPORT INFORMATION
  Report Type: Spontaneous
  Country: JP (occurrence: JP)
  Receive Date: 20170712
  Receipt Date: 20170712
  Transmission Date: 20171127
  Serious: Yes (Other)
  Sender: FDA-Public Use
  Company Number: JP-PFIZER INC-2017278550

PATIENT
  Age: 66 Year
  Sex: Female

DRUGS (5)
  1. IMIDOL [Concomitant]
     Dosage: 30 MG, 3X/DAY
     Route: 048
     Dates: start: 20170703
  2. SOLANAX [Concomitant]
     Active Substance: ALPRAZOLAM
     Dosage: 1.2 MG, 3X/DAY
     Route: 048
     Dates: start: 20160122
  3. SEDIEL [Concomitant]
     Active Substance: TANDOSPIRONE
     Dosage: 30 MG, 3X/DAY
     Dates: start: 20140715, end: 20170703
  4. EFFEXOR [Suspect]
     Active Substance: VENLAFAXINE HYDROCHLORIDE
     Indication: CONDITION AGGRAVATED
     Dosage: 37.5 MG, 1X/DAY
     Route: 048
     Dates: start: 20170623, end: 20170626
  5. SEDIEL [Concomitant]
     Active Substance: TANDOSPIRONE
     Dosage: 15 MG, 3X/DAY
     Dates: start: 20140702, end: 20140714

REACTIONS (1)
  - Oropharyngeal pain [Recovered/Resolved]

NARRATIVE: CASE EVENT DATE: 20170626
